FAERS Safety Report 4752831-6 (Version None)
Quarter: 2005Q3

REPORT INFORMATION
  Report Type: 
  Country: None (occurrence: None)
  Receive Date: 20050714
  Receipt Date: 20041006
  Transmission Date: 20060218
  Serious: Yes (Hospitalization)
  Sender: FDA-Public Use
  Company Number: 200417692US

PATIENT
  Age: 64 Year
  Sex: Female
  Weight: 56.8 kg

DRUGS (3)
  1. TAXOTERE [Suspect]
     Indication: PANCREATIC CARCINOMA
     Dosage: QW
     Dates: start: 20040628
  2. GEMCITABINE HYDROCHLORIDE (GEMZAR) [Concomitant]
  3. OXYCODONE HYDROCHLORIDE (OXYCONTIN) [Concomitant]

REACTIONS (5)
  - DYSPNOEA [None]
  - FLUID RETENTION [None]
  - FULL BLOOD COUNT DECREASED [None]
  - MYALGIA [None]
  - WEIGHT INCREASED [None]
